FAERS Safety Report 16655177 (Version 2)
Quarter: 2021Q4

REPORT INFORMATION
  Report Type: Spontaneous
  Country: CA (occurrence: CA)
  Receive Date: 20190801
  Receipt Date: 20211109
  Transmission Date: 20220303
  Serious: Yes (Other)
  Sender: FDA-Public Use
  Company Number: CA-AUROBINDO-AUR-APL-2019-043644

PATIENT
  Age: 29 Year
  Sex: Male

DRUGS (1)
  1. LEVETIRACETAM [Suspect]
     Active Substance: LEVETIRACETAM
     Indication: Epilepsy
     Dosage: 1500 MILLIGRAM, TWO TIMES A DAY
     Route: 065

REACTIONS (3)
  - Seizure [Recovered/Resolved]
  - Product substitution issue [Recovered/Resolved]
  - Vomiting [Recovered/Resolved]
